FAERS Safety Report 7825859-7 (Version None)
Quarter: 2011Q4

REPORT INFORMATION
  Report Type: 
  Country: None (occurrence: None)
  Receive Date: 20111019
  Receipt Date: 20111010
  Transmission Date: 20120403
  Serious: Yes (Hospitalization)
  Sender: FDA-Public Use
  Company Number: FR-ASTRAZENECA-2011SE61206

PATIENT
  Age: 78 Year
  Sex: Male

DRUGS (10)
  1. MARSILID PHOSPHATE TAB [Suspect]
     Route: 048
     Dates: start: 20110909, end: 20110915
  2. NEXIUM [Suspect]
     Route: 048
  3. ASPIRIN [Suspect]
     Route: 048
     Dates: end: 20110901
  4. INDAPAMIDE [Suspect]
     Route: 048
     Dates: end: 20110826
  5. MARSILID PHOSPHATE TAB [Suspect]
     Route: 048
     Dates: start: 20110826, end: 20110902
  6. PERINDOPRIL ERBUMINE [Suspect]
     Route: 048
     Dates: end: 20110826
  7. PREVISCAN [Suspect]
     Route: 048
     Dates: end: 20110831
  8. CRESTOR [Suspect]
     Route: 048
     Dates: end: 20110826
  9. MARSILID PHOSPHATE TAB [Suspect]
     Indication: DEPRESSION
     Route: 048
     Dates: end: 20110825
  10. CORDARONE [Suspect]
     Route: 048

REACTIONS (2)
  - ORTHOSTATIC HYPOTENSION [None]
  - HYPERTENSION [None]
